FAERS Safety Report 6481348-6 (Version None)
Quarter: 2009Q4

REPORT INFORMATION
  Report Type: 
  Country: None (occurrence: None)
  Receive Date: 20091208
  Receipt Date: 20091201
  Transmission Date: 20100525
  Serious: Yes (Other)
  Sender: FDA-Public Use
  Company Number: B0610335A

PATIENT
  Sex: Female

DRUGS (3)
  1. KIVEXA [Suspect]
     Indication: HIV INFECTION
     Dosage: 1TAB PER DAY
     Route: 048
     Dates: start: 20091128
  2. TELZIR [Concomitant]
     Indication: HIV INFECTION
     Dosage: 2TAB PER DAY
     Route: 048
  3. NORVIR [Concomitant]
     Indication: HIV INFECTION
     Dosage: 2TAB PER DAY
     Route: 048

REACTIONS (2)
  - ERYTHEMA MULTIFORME [None]
  - SKIN LESION [None]
